FAERS Safety Report 14911946 (Version 1)
Quarter: 2018Q2

REPORT INFORMATION
  Report Type: Report from Study
  Country: US (occurrence: US)
  Receive Date: 20180518
  Receipt Date: 20180518
  Transmission Date: 20180711
  Serious: Yes (Hospitalization, Other)
  Sender: FDA-Public Use
  Company Number: US-BRISTOL-MYERS SQUIBB COMPANY-BMS-2018-044019

PATIENT
  Age: 61 Year
  Sex: Female
  Weight: 71.9 kg

DRUGS (2)
  1. IPILIMUMAB [Suspect]
     Active Substance: IPILIMUMAB
     Indication: BILE DUCT CANCER
     Dosage: 75 MG, UNK
     Route: 042
     Dates: start: 20180315, end: 20180315
  2. NIVOLUMAB [Suspect]
     Active Substance: NIVOLUMAB
     Indication: BILE DUCT CANCER
     Dosage: 240 MG, UNK
     Route: 042
     Dates: start: 20180315, end: 20180315

REACTIONS (3)
  - Meningitis aseptic [Recovered/Resolved with Sequelae]
  - Headache [Recovered/Resolved with Sequelae]
  - Pyelonephritis [Unknown]

NARRATIVE: CASE EVENT DATE: 20180320
